FAERS Safety Report 16952722 (Version 2)
Quarter: 2025Q4

REPORT INFORMATION
  Report Type: Spontaneous
  Country: US (occurrence: US)
  Receive Date: 20191023
  Receipt Date: 20251002
  Transmission Date: 20260118
  Serious: Yes (Other)
  Sender: AUROBINDO
  Company Number: US-MYLANLABS-2019M1099958

PATIENT
  Age: 63 Year
  Sex: Female

DRUGS (4)
  1. HYDROXYCHLOROQUINE [Interacting]
     Active Substance: HYDROXYCHLOROQUINE
     Indication: Rheumatoid arthritis
     Dosage: 200 MILLIGRAM, ONCE A DAY(RECEIVING SINCE 33 YEARS)
     Route: 065
  2. TAXOTERE [Interacting]
     Active Substance: DOCETAXEL
     Indication: Invasive breast carcinoma
     Dosage: UNK(COMPLETED 4 CYCLES)
     Route: 065
  3. TAXOTERE [Interacting]
     Active Substance: DOCETAXEL
     Indication: Invasive breast carcinoma
  4. CYCLOPHOSPHAMIDE [Concomitant]
     Active Substance: CYCLOPHOSPHAMIDE
     Indication: Invasive breast carcinoma
     Dosage: UNK(COMPLETED 4 CYCLES)
     Route: 065

REACTIONS (5)
  - Cataract nuclear [Unknown]
  - Cystoid macular oedema [Recovering/Resolving]
  - Maculopathy [Recovering/Resolving]
  - Blindness [Recovering/Resolving]
  - Drug interaction [Recovering/Resolving]
